FAERS Safety Report 9138967 (Version 1)
Quarter: 2013Q1

REPORT INFORMATION
  Report Type: Spontaneous
  Country: US (occurrence: US)
  Receive Date: 20130305
  Receipt Date: 20130305
  Transmission Date: 20140127
  Serious: Yes (Hospitalization)
  Sender: FDA-Public Use
  Company Number: US-BAYER-2013-027592

PATIENT
  Age: 26 Year
  Sex: Female

DRUGS (5)
  1. YASMIN [Suspect]
  2. BUMEX [Concomitant]
     Dosage: 1 MG, DAILY
     Route: 048
  3. K-DUR [Concomitant]
     Dosage: 20 MEQ, DAILY
     Route: 048
  4. ANAPROX [Concomitant]
     Dosage: UNK
     Route: 048
     Dates: start: 20040731
  5. DIAZIDE [Concomitant]

REACTIONS (1)
  - Deep vein thrombosis [Recovered/Resolved]
